FAERS Safety Report 24662342 (Version 1)
Quarter: 2024Q4

REPORT INFORMATION
  Report Type: Report from Study
  Country: ZA (occurrence: ZA)
  Receive Date: 20241125
  Receipt Date: 20241125
  Transmission Date: 20250115
  Serious: Yes (Death)
  Sender: ABBVIE
  Company Number: ZA-ABBVIE-6015223

PATIENT
  Age: 15 Year
  Sex: Female

DRUGS (2)
  1. BOTOX [Suspect]
     Active Substance: ONABOTULINUMTOXINA
     Indication: Cerebral palsy
     Dosage: TIME INTERVAL: AS NECESSARY: 500 U (100+200X2)?EVERY 3 MONTHS?FORM STRENGTH: 100 IU?FORM STRENGTH...
     Route: 065
     Dates: start: 20240216, end: 20240216
  2. BOTOX [Suspect]
     Active Substance: ONABOTULINUMTOXINA
     Indication: Cerebral palsy
     Dosage: TIME INTERVAL: AS NECESSARY: 500 U (100+200X2)?EVERY 3 MONTHS?FORM STRENGTH: 100 IU?FORM STRENGTH...
     Route: 065
     Dates: start: 20240216, end: 20240216

REACTIONS (1)
  - Death [Fatal]

NARRATIVE: CASE EVENT DATE: 20241101
